FAERS Safety Report 23080741 (Version 1)
Quarter: 2023Q4

REPORT INFORMATION
  Report Type: Spontaneous
  Country: US (occurrence: None)
  Receive Date: 20231018
  Receipt Date: 20231018
  Transmission Date: 20240109
  Serious: No
  Sender: FDA-Public Use
  Company Number: None

PATIENT
  Age: 35 Year
  Sex: Female
  Weight: 67.5 kg

DRUGS (2)
  1. METRONIDAZOLE VAGINAL GEL, 0.75% [Suspect]
     Active Substance: METRONIDAZOLE
     Indication: Bacterial vaginosis
     Dosage: OTHER QUANTITY : 5 APPLICATORS;?FREQUENCY : AT BEDTIME;?
     Route: 067
     Dates: start: 20231012, end: 20231018
  2. BUPROPION [Concomitant]
     Active Substance: BUPROPION

REACTIONS (3)
  - Vaginal discharge [None]
  - Drug delivery system issue [None]
  - Drug-disease interaction [None]

NARRATIVE: CASE EVENT DATE: 20231016
